FAERS Safety Report 5715492-5 (Version None)
Quarter: 2008Q2

REPORT INFORMATION
  Report Type: 
  Country: None (occurrence: None)
  Receive Date: 20080422
  Receipt Date: 20080407
  Transmission Date: 20081010
  Serious: Yes (Hospitalization, Other)
  Sender: FDA-Public Use
  Company Number: 2008MB000041

PATIENT
  Age: 69 Year
  Sex: Male
  Weight: 75.2971 kg

DRUGS (12)
  1. KEFLEX [Suspect]
     Indication: CELLULITIS
     Dates: start: 20080201, end: 20080312
  2. GEMZAR [Suspect]
     Indication: NON-SMALL CELL LUNG CANCER
     Dates: start: 20080201, end: 20080301
  3. CISPLATIN [Concomitant]
  4. VITAMIN CAP [Concomitant]
  5. FLOMAX [Concomitant]
  6. NICORETTE /01033301/ [Concomitant]
  7. HYDREA [Concomitant]
  8. VITAMIN B12 /00056201/ [Concomitant]
  9. OXYCODONE HCL [Concomitant]
  10. DOXYCYCLINE [Concomitant]
  11. OMEPRAZOLE [Concomitant]
  12. ALUMINIUM HYDROXIDE W/MAGNESIUM HYDROXIDE [Concomitant]

REACTIONS (27)
  - ANAEMIA OF CHRONIC DISEASE [None]
  - BLOOD BICARBONATE INCREASED [None]
  - BLOOD GLUCOSE INCREASED [None]
  - BLOOD POTASSIUM DECREASED [None]
  - CATHETER RELATED COMPLICATION [None]
  - CELLULITIS [None]
  - DIARRHOEA [None]
  - DIZZINESS [None]
  - DYSPEPSIA [None]
  - DYSPHAGIA [None]
  - FATIGUE [None]
  - HAEMOGLOBIN DECREASED [None]
  - HEADACHE [None]
  - HICCUPS [None]
  - HYDROPNEUMOTHORAX [None]
  - LABORATORY TEST INTERFERENCE [None]
  - MUCOSAL INFLAMMATION [None]
  - NAUSEA [None]
  - NEUTROPENIA [None]
  - ORAL PAIN [None]
  - PERFORMANCE STATUS DECREASED [None]
  - PLATELET MORPHOLOGY ABNORMAL [None]
  - RHEUMATOID FACTOR INCREASED [None]
  - STOMATITIS [None]
  - THERAPEUTIC RESPONSE DECREASED [None]
  - THROMBOCYTHAEMIA [None]
  - VOMITING [None]
